FAERS Safety Report 20961585 (Version 1)
Quarter: 2022Q2

REPORT INFORMATION
  Report Type: Spontaneous
  Country: US (occurrence: US)
  Receive Date: 20220615
  Receipt Date: 20220615
  Transmission Date: 20220721
  Serious: Yes (Other)
  Sender: FDA-Public Use
  Company Number: US-BAYER-2022A080348

PATIENT
  Age: 63 Year
  Sex: Female

DRUGS (1)
  1. KERENDIA [Suspect]
     Active Substance: FINERENONE
     Dosage: 10 MG
     Dates: start: 20211022, end: 20211222

REACTIONS (4)
  - Chronic kidney disease [None]
  - Blood creatinine increased [Recovered/Resolved]
  - Glomerular filtration rate decreased [None]
  - Urine albumin/creatinine ratio increased [Recovered/Resolved]

NARRATIVE: CASE EVENT DATE: 20211001
